FAERS Safety Report 4816063-5 (Version None)
Quarter: 2005Q4

REPORT INFORMATION
  Report Type: 
  Country: None (occurrence: None)
  Receive Date: 20051026
  Receipt Date: 20051006
  Transmission Date: 20060501
  Serious: Yes (Other)
  Sender: FDA-Public Use
  Company Number: US_0507120096

PATIENT
  Age: 82 Year
  Sex: Female

DRUGS (1)
  1. EVISTA [Suspect]
     Dates: start: 20010804, end: 20011019

REACTIONS (3)
  - BLINDNESS TRANSIENT [None]
  - BLINDNESS UNILATERAL [None]
  - THROMBOSIS [None]
